FAERS Safety Report 15998951 (Version 1)
Quarter: 2019Q1

REPORT INFORMATION
  Report Type: Spontaneous
  Country: US (occurrence: US)
  Receive Date: 20190223
  Receipt Date: 20190223
  Transmission Date: 20190418
  Serious: Yes (Other)
  Sender: FDA-Public Use
  Company Number: US-ASTRAZENECA-2018SF21141

PATIENT
  Age: 19772 Day
  Sex: Female
  Weight: 134 kg

DRUGS (23)
  1. PREVACID [Suspect]
     Active Substance: LANSOPRAZOLE
     Route: 065
  2. DOXAZOSIN [Concomitant]
     Active Substance: DOXAZOSIN\DOXAZOSIN MESYLATE
  3. METOPROLOL SUCCINATE. [Concomitant]
     Active Substance: METOPROLOL SUCCINATE
  4. LEVOTHYROXINE. [Concomitant]
     Active Substance: LEVOTHYROXINE
  5. PRAZOSIN. [Concomitant]
     Active Substance: PRAZOSIN
  6. ROCALTROL [Concomitant]
     Active Substance: CALCITRIOL
  7. CITALOPRAM [Concomitant]
     Active Substance: CITALOPRAM HYDROBROMIDE
  8. SIMVASTATIN. [Concomitant]
     Active Substance: SIMVASTATIN
  9. PRILOSEC [Suspect]
     Active Substance: OMEPRAZOLE MAGNESIUM
     Route: 048
  10. ALLOPURINOL. [Concomitant]
     Active Substance: ALLOPURINOL
  11. FERRIC CITRATE [Concomitant]
     Active Substance: TETRAFERRIC TRICITRATE DECAHYDRATE
  12. NORVASC [Concomitant]
     Active Substance: AMLODIPINE BESYLATE
  13. ALDACTONE [Concomitant]
     Active Substance: SPIRONOLACTONE
  14. NEXIUM [Suspect]
     Active Substance: ESOMEPRAZOLE MAGNESIUM
     Route: 048
  15. PRILOSEC [Suspect]
     Active Substance: OMEPRAZOLE MAGNESIUM
     Route: 048
     Dates: start: 20151210
  16. FUROSEMIDE. [Concomitant]
     Active Substance: FUROSEMIDE
  17. CLEOCIN [Concomitant]
     Active Substance: CLINDAMYCIN PHOSPHATE
  18. PREVACID 24 HR [Suspect]
     Active Substance: LANSOPRAZOLE
     Route: 065
  19. RENVELA [Concomitant]
     Active Substance: SEVELAMER CARBONATE
  20. ULORIC [Concomitant]
     Active Substance: FEBUXOSTAT
  21. VITAMIN C [Concomitant]
     Active Substance: ASCORBIC ACID
  22. CELEXA [Concomitant]
     Active Substance: CITALOPRAM HYDROBROMIDE
  23. PRILOSEC OTC [Suspect]
     Active Substance: OMEPRAZOLE MAGNESIUM
     Route: 048

REACTIONS (6)
  - Nephrogenic anaemia [Unknown]
  - End stage renal disease [Unknown]
  - Renal injury [Unknown]
  - Renal failure [Unknown]
  - Hyperparathyroidism secondary [Unknown]
  - Chronic kidney disease [Unknown]

NARRATIVE: CASE EVENT DATE: 20151210
